FAERS Safety Report 16956153 (Version 2)
Quarter: 2020Q1

REPORT INFORMATION
  Report Type: Spontaneous
  Country: GB (occurrence: GB)
  Receive Date: 20191024
  Receipt Date: 20200116
  Transmission Date: 20200409
  Serious: Yes (Other)
  Sender: FDA-Public Use
  Company Number: GB-ACCORD-159033

PATIENT
  Age: 51 Year
  Sex: Male
  Weight: 76 kg

DRUGS (9)
  1. ATORVASTATIN/ATORVASTATIN CALCIUM [Suspect]
     Active Substance: ATORVASTATIN CALCIUM
     Indication: PROPHYLAXIS
     Dosage: IN THE MORNING
     Dates: start: 20170310, end: 20180603
  2. ACETYLSALICYLIC ACID [Concomitant]
     Active Substance: ASPIRIN
     Dates: start: 20170314
  3. CLOPIDOGREL [Concomitant]
     Active Substance: CLOPIDOGREL BISULFATE
     Dates: start: 20170314, end: 201709
  4. LANSOPRAZOLE. [Concomitant]
     Active Substance: LANSOPRAZOLE
     Dates: start: 20170314
  5. CANDESARTAN. [Concomitant]
     Active Substance: CANDESARTAN
     Dates: start: 20180507
  6. RAMIPRIL. [Suspect]
     Active Substance: RAMIPRIL
     Indication: HYPERTENSION
     Dosage: MORNING
     Dates: start: 20170314, end: 2018
  7. CETIRIZINE [Concomitant]
     Active Substance: CETIRIZINE HYDROCHLORIDE
     Indication: PERIORBITAL OEDEMA
     Dates: start: 20170620, end: 2018
  8. BISOPROLOL [Concomitant]
     Active Substance: BISOPROLOL
     Dates: start: 20170314, end: 20180428
  9. AMLODIPINE [Concomitant]
     Active Substance: AMLODIPINE BESYLATE
     Dates: start: 20170314

REACTIONS (17)
  - Burning sensation [Unknown]
  - Periorbital discomfort [Unknown]
  - Peripheral swelling [Not Recovered/Not Resolved]
  - Sleep disorder [Unknown]
  - Tendon pain [Recovering/Resolving]
  - Angioedema [Recovered/Resolved]
  - Pain in extremity [Recovering/Resolving]
  - Joint swelling [Unknown]
  - Muscle fatigue [Unknown]
  - Malaise [Unknown]
  - Palmar fasciitis [Unknown]
  - Bursitis [Recovering/Resolving]
  - Synovial cyst [Unknown]
  - Pruritus [Unknown]
  - Musculoskeletal pain [Unknown]
  - Myalgia [Recovering/Resolving]
  - Chromaturia [Unknown]

NARRATIVE: CASE EVENT DATE: 20170617
